FAERS Safety Report 19000121 (Version 1)
Quarter: 2021Q1

REPORT INFORMATION
  Report Type: Spontaneous
  Country: CN (occurrence: CN)
  Receive Date: 20210312
  Receipt Date: 20210312
  Transmission Date: 20210420
  Serious: Yes (Other)
  Sender: FDA-Public Use
  Company Number: CN-BAXTER-2021BAX004739

PATIENT
  Age: 55 Year
  Sex: Male
  Weight: 70.5 kg

DRUGS (4)
  1. 0.9% SODIUM CHLORIDE INJECTION [Suspect]
     Active Substance: SODIUM CHLORIDE
     Dosage: 0.9% SODIUM CHLORIDE+ PHARMORUBICIN 150 MG
     Route: 041
     Dates: start: 20210120, end: 20210120
  2. HOLOXAN [Suspect]
     Active Substance: IFOSFAMIDE
     Indication: RETROPERITONEAL CANCER
     Dosage: HOLOXAN + 0.9% SODIUM CHLORIDE 500 ML
     Route: 041
     Dates: start: 20210120, end: 20210123
  3. 0.9% SODIUM CHLORIDE INJECTION [Suspect]
     Active Substance: SODIUM CHLORIDE
     Indication: MEDICATION DILUTION
     Dosage: 0.9% SODIUM CHLORIDE + HOLOXAN 4.4 G
     Route: 041
     Dates: start: 20210120, end: 20210123
  4. PHARMORUBICIN [Suspect]
     Active Substance: EPIRUBICIN
     Indication: RETROPERITONEAL CANCER
     Dosage: PHARMORUBICIN + 0.9% SODIUM CHLORIDE 100 ML
     Route: 041
     Dates: start: 20210120, end: 20210120

REACTIONS (1)
  - Myelosuppression [Recovering/Resolving]

NARRATIVE: CASE EVENT DATE: 20210128
